FAERS Safety Report 4345933-X (Version None)
Quarter: 2004Q2

REPORT INFORMATION
  Report Type: 
  Country: None (occurrence: None)
  Receive Date: 20040421
  Receipt Date: 20040408
  Transmission Date: 20050107
  Serious: Yes (Hospitalization)
  Sender: FDA-Public Use
  Company Number: 2004IM000078

PATIENT
  Age: 21 Year
  Sex: Female
  Weight: 53.978 kg

DRUGS (11)
  1. INFERGEN [Suspect]
     Indication: HEPATITIS C
     Dosage: 12 MU; TIW; SUBCUTANEOUS
     Route: 058
     Dates: start: 20031105, end: 20040101
  2. RIBAVIRIN [Suspect]
     Indication: HEPATITIS C
     Dosage: 400 MG; QD; ORAL
     Route: 048
     Dates: start: 20030111, end: 20040101
  3. EPOGEN [Concomitant]
  4. ALEESE [Concomitant]
  5. TYLENOL PM [Concomitant]
  6. VITAMIN C [Concomitant]
  7. VITAMIN E [Concomitant]
  8. ST. MARY'S THISTLE [Concomitant]
  9. ADVIL [Concomitant]
  10. PROTONIX [Concomitant]
  11. MULTI-VITAMINS [Concomitant]

REACTIONS (10)
  - DEHYDRATION [None]
  - HAEMATOCHEZIA [None]
  - HAEMATOCRIT DECREASED [None]
  - HAEMOGLOBIN DECREASED [None]
  - HYPOKALAEMIA [None]
  - LEUKOPENIA [None]
  - NAUSEA [None]
  - RECTAL HAEMORRHAGE [None]
  - VOMITING [None]
  - WHITE BLOOD CELL COUNT DECREASED [None]
